FAERS Safety Report 12616657 (Version 1)
Quarter: 2016Q3

REPORT INFORMATION
  Report Type: Spontaneous
  Country: NZ (occurrence: NZ)
  Receive Date: 20160802
  Receipt Date: 20160802
  Transmission Date: 20161109
  Serious: Yes (Other)
  Sender: FDA-Public Use
  Company Number: NZ-ALLERGAN-1663893US

PATIENT
  Age: 27 Year
  Sex: Male

DRUGS (2)
  1. LATANOPROST. [Concomitant]
     Active Substance: LATANOPROST
     Indication: KERATORHEXIS
     Dosage: UNK UNK, QHS
  2. PREDNISOLONE UNK [Suspect]
     Active Substance: PREDNISOLONE
     Indication: KERATORHEXIS
     Dosage: 6 TIMES DAILY

REACTIONS (3)
  - Off label use [Unknown]
  - Keratitis bacterial [Recovered/Resolved with Sequelae]
  - Corneal scar [Unknown]
